FAERS Safety Report 7002441-5 (Version None)
Quarter: 2010Q3

REPORT INFORMATION
  Report Type: 
  Country: None (occurrence: None)
  Receive Date: 20100920
  Receipt Date: 20090220
  Transmission Date: 20110219
  Serious: Yes (Hospitalization)
  Sender: FDA-Public Use
  Company Number: FR-PFIZER INC-2010117365

PATIENT
  Age: 57 Year
  Sex: Male

DRUGS (4)
  1. MINIPRESS [Suspect]
     Route: 048
  2. METFORMIN [Suspect]
     Route: 048
  3. FLUDEX [Suspect]
     Route: 048
  4. IPERTEN [Suspect]
     Route: 048

REACTIONS (2)
  - COUGH [None]
  - SYNCOPE [None]
